FAERS Safety Report 15260751 (Version 1)
Quarter: 2018Q3

REPORT INFORMATION
  Report Type: Report from Study
  Country: CA (occurrence: CA)
  Receive Date: 20180809
  Receipt Date: 20180809
  Transmission Date: 20181010
  Serious: Yes (Other)
  Sender: FDA-Public Use
  Company Number: PHHY2018CA010662

PATIENT
  Age: 81 Year
  Sex: Female

DRUGS (2)
  1. JADENU [Suspect]
     Active Substance: DEFERASIROX
     Indication: MYELODYSPLASTIC SYNDROME
     Dosage: 900 MG, QD
     Route: 048
     Dates: start: 20180505
  2. JADENU [Suspect]
     Active Substance: DEFERASIROX
     Dosage: 450 MG, QD
     Route: 048
     Dates: start: 20180505

REACTIONS (9)
  - Intestinal obstruction [Unknown]
  - Dysuria [Unknown]
  - Bacterial test positive [Unknown]
  - Renal disorder [Unknown]
  - Dyspepsia [Unknown]
  - Nausea [Unknown]
  - Diarrhoea [Unknown]
  - Bladder obstruction [Unknown]
  - Therapeutic response unexpected [Unknown]

NARRATIVE: CASE EVENT DATE: 20180619
